FAERS Safety Report 24725752 (Version 1)
Quarter: 2024Q4

REPORT INFORMATION
  Report Type: Spontaneous
  Country: FR (occurrence: FR)
  Receive Date: 20241212
  Receipt Date: 20241212
  Transmission Date: 20250115
  Serious: Yes (Hospitalization)
  Sender: HIKMA
  Company Number: None

PATIENT
  Age: 84 Year
  Sex: Male

DRUGS (1)
  1. IRINOTECAN [Suspect]
     Active Substance: IRINOTECAN
     Indication: Adenocarcinoma of colon
     Dosage: 320 MILLIGRAM
     Route: 051
     Dates: start: 20241016, end: 20241016

REACTIONS (2)
  - Erythema [Unknown]
  - Hot flush [Unknown]

NARRATIVE: CASE EVENT DATE: 20241016
